FAERS Safety Report 9168023 (Version 1)
Quarter: 2013Q1

REPORT INFORMATION
  Report Type: Spontaneous
  Country: US (occurrence: US)
  Receive Date: 20130318
  Receipt Date: 20130318
  Transmission Date: 20140127
  Serious: Yes (Other)
  Sender: FDA-Public Use
  Company Number: US-ASTRAZENECA-2013SE17052

PATIENT
  Age: 72 Year
  Sex: Female

DRUGS (6)
  1. NEXIUM [Suspect]
     Indication: GASTROOESOPHAGEAL REFLUX DISEASE
     Route: 048
     Dates: start: 2003
  2. BLOOD PRESSURE MEDCINIE [Suspect]
     Indication: BLOOD PRESSURE ABNORMAL
     Route: 065
  3. ANTIBIOTIC [Suspect]
     Route: 065
     Dates: start: 201302
  4. COUMADIN [Concomitant]
     Indication: ANTICOAGULANT THERAPY
     Dates: start: 2008
  5. QUINIPRIL [Concomitant]
     Indication: BLOOD PRESSURE ABNORMAL
     Dates: start: 2010
  6. SOTOLOL [Concomitant]
     Indication: CARDIAC DISORDER
     Dates: start: 2010

REACTIONS (12)
  - Skin cancer [Unknown]
  - Thrombosis [Unknown]
  - Body height decreased [Unknown]
  - Coeliac disease [Unknown]
  - Cough [Unknown]
  - Cardiac fibrillation [Unknown]
  - Hiatus hernia [Unknown]
  - Ulcer [Unknown]
  - Hypertension [Unknown]
  - Osteoporosis [Unknown]
  - Rash morbilliform [Unknown]
  - Rash pruritic [Unknown]
